FAERS Safety Report 5494560-X (Version None)
Quarter: 2007Q4

REPORT INFORMATION
  Report Type: 
  Country: None (occurrence: None)
  Receive Date: 20071024
  Receipt Date: 20071023
  Transmission Date: 20080405
  Serious: Yes (Hospitalization)
  Sender: FDA-Public Use
  Company Number: FR-BRISTOL-MYERS SQUIBB COMPANY-13734645

PATIENT
  Age: 81 Year
  Sex: Female
  Weight: 67 kg

DRUGS (4)
  1. COAPROVEL TABS [Suspect]
     Indication: HYPERTENSION
     Route: 048
     Dates: start: 20070124, end: 20070329
  2. TANAKAN [Suspect]
     Indication: DIZZINESS
     Route: 048
  3. ZYLORIC [Suspect]
     Indication: GOUT
     Route: 048
  4. LECTIL [Suspect]
     Indication: DIZZINESS
     Route: 048
     Dates: end: 20070329

REACTIONS (1)
  - BONE MARROW FAILURE [None]
